FAERS Safety Report 4753382-5 (Version None)
Quarter: 2005Q3

REPORT INFORMATION
  Report Type: 
  Country: None (occurrence: None)
  Receive Date: 20050824
  Receipt Date: 20050808
  Transmission Date: 20060218
  Serious: Yes (Other)
  Sender: FDA-Public Use
  Company Number: USA0508104886

PATIENT
  Age: 17 Year
  Sex: Female

DRUGS (6)
  1. SARAFEM [Suspect]
     Indication: MOOD SWINGS
     Dosage: 40 MG
     Dates: start: 20030101
  2. ADDERALL 10 [Concomitant]
  3. SINGULAIR [Concomitant]
  4. PULMOCORTISON INY [Concomitant]
  5. PREVACID [Concomitant]
  6. ALLEGRA [Concomitant]

REACTIONS (6)
  - DEAFNESS [None]
  - MENSTRUAL DISORDER [None]
  - MIGRAINE [None]
  - NERVE INJURY [None]
  - OFF LABEL USE [None]
  - VOCAL CORD THICKENING [None]
